FAERS Safety Report 5862374-4 (Version None)
Quarter: 2008Q3

REPORT INFORMATION
  Report Type: 
  Country: None (occurrence: None)
  Receive Date: 20080828
  Receipt Date: 20080827
  Transmission Date: 20090109
  Serious: Yes (Hospitalization)
  Sender: FDA-Public Use
  Company Number: DK-BRISTOL-MYERS SQUIBB COMPANY-14291454

PATIENT
  Age: 45 Year
  Sex: Male
  Weight: 73 kg

DRUGS (5)
  1. PACLITAXEL [Suspect]
     Indication: GERM CELL CANCER
     Dosage: STARTED ON 28MAY08
     Route: 042
     Dates: start: 20080528, end: 20080601
  2. CISPLATIN [Suspect]
     Indication: GERM CELL CANCER
     Dosage: STARTED ON 28MAY08
     Route: 042
     Dates: start: 20080528, end: 20080601
  3. ETOPOSIDE [Suspect]
     Indication: GERM CELL CANCER
     Dosage: STARTED ON 28MAY08
     Route: 042
     Dates: start: 20080528, end: 20080601
  4. BLEOMYCIN SULFATE [Suspect]
     Indication: GERM CELL CANCER
     Dosage: STARTED ON 28MAY08
     Route: 042
     Dates: start: 20080528, end: 20080601
  5. NEUPOGEN [Suspect]
     Dates: start: 20080602, end: 20080612

REACTIONS (3)
  - DIARRHOEA HAEMORRHAGIC [None]
  - FEBRILE NEUTROPENIA [None]
  - HAEMORRHOIDS [None]
